FAERS Safety Report 6895356-4 (Version None)
Quarter: 2010Q3

REPORT INFORMATION
  Report Type: 
  Country: None (occurrence: None)
  Receive Date: 20100802
  Receipt Date: 20100728
  Transmission Date: 20110219
  Serious: Yes (Life-Threatening)
  Sender: FDA-Public Use
  Company Number: FR-ASTRAZENECA-2010SE35437

PATIENT
  Age: 674 Month
  Sex: Male

DRUGS (3)
  1. XYLOCAINE [Suspect]
     Indication: ANAESTHESIA
     Route: 050
     Dates: start: 20100701, end: 20100701
  2. XYLOCAINE [Suspect]
     Indication: TENDONITIS
     Route: 050
     Dates: start: 20100701, end: 20100701
  3. HYDROCORTANCYL [Suspect]
     Indication: TENDONITIS
     Dates: start: 20100701, end: 20100701

REACTIONS (1)
  - ANGIOEDEMA [None]
